FAERS Safety Report 11855231 (Version 1)
Quarter: 2015Q4

REPORT INFORMATION
  Report Type: Spontaneous
  Country: None (occurrence: None)
  Receive Date: 20151218
  Receipt Date: 20151218
  Transmission Date: 20160305
  Serious: Yes (Other)
  Sender: FDA-Public Use
  Company Number: None

PATIENT
  Age: 48 Year
  Sex: Male
  Weight: 74 kg

DRUGS (30)
  1. CYCLOSPORINE (GENGRAF) [Concomitant]
  2. FILGRASTIM [Concomitant]
     Active Substance: FILGRASTIM
  3. PREDNISONE. [Concomitant]
     Active Substance: PREDNISONE
  4. IBUPROFEN. [Concomitant]
     Active Substance: IBUPROFEN
  5. AMPHOTERICIN B LIPID (ABELCET) [Concomitant]
  6. DOXYCYCLINE. [Concomitant]
     Active Substance: DOXYCYCLINE
  7. HEPARIN [Concomitant]
     Active Substance: HEPARIN SODIUM
  8. VALACYCLOVIR [Concomitant]
     Active Substance: VALACYCLOVIR HYDROCHLORIDE
  9. MICAFUNGIN [Concomitant]
     Active Substance: MICAFUNGIN
  10. ABELCET [Suspect]
     Active Substance: AMPHOTERICIN B\DIMYRISTOYLPHOSPHATIDYLCHOLINE, DL-\DIMYRISTOYLPHOSPHATIDYLGLYCEROL, DL-
     Indication: ASPERGILLUS INFECTION
     Route: 042
     Dates: start: 20151129, end: 20151217
  11. CEFTAZIDIME. [Suspect]
     Active Substance: CEFTAZIDIME
     Indication: NEUTROPENIC SEPSIS
     Route: 042
     Dates: start: 20151209, end: 20151217
  12. DRONABINAL [Concomitant]
  13. MEROPENEM. [Concomitant]
     Active Substance: MEROPENEM
  14. METHYLPREDNISOLONE. [Concomitant]
     Active Substance: METHYLPREDNISOLONE
  15. COPPER GLUCONATE [Concomitant]
     Active Substance: COPPER GLUCONATE
  16. NYSTATIN. [Concomitant]
     Active Substance: NYSTATIN
  17. VORICONAZOLE. [Concomitant]
     Active Substance: VORICONAZOLE
  18. MULTIVITAMIN WITH MINERALS [Concomitant]
     Active Substance: MINERALS\VITAMINS
  19. ACETAMINOPHEN. [Concomitant]
     Active Substance: ACETAMINOPHEN
  20. CALCIUM [Concomitant]
     Active Substance: CALCIUM
  21. INSULIN ASPART SLIDING SCALE [Concomitant]
  22. METOPROLOL [Concomitant]
     Active Substance: METOPROLOL
  23. PSYLLIUM [Concomitant]
     Active Substance: PLANTAGO SEED
  24. VITAMIN D [Concomitant]
     Active Substance: CHOLECALCIFEROL
  25. DACLATASVIR. [Concomitant]
     Active Substance: DACLATASVIR
  26. METRONIDAZOLE. [Concomitant]
     Active Substance: METRONIDAZOLE
  27. SOFOSBUVIR [Concomitant]
     Active Substance: SOFOSBUVIR
  28. AZTREONAME [Concomitant]
  29. CEFEPIME [Concomitant]
     Active Substance: CEFEPIME HYDROCHLORIDE
  30. MINOCYCLINE [Concomitant]
     Active Substance: MINOCYCLINE\MINOCYCLINE HYDROCHLORIDE

REACTIONS (3)
  - Liver function test abnormal [None]
  - Escherichia bacteraemia [None]
  - Rash [None]

NARRATIVE: CASE EVENT DATE: 20151213
